FAERS Safety Report 18595145 (Version 1)
Quarter: 2020Q4

REPORT INFORMATION
  Report Type: Spontaneous
  Country: US (occurrence: US)
  Receive Date: 20201208
  Receipt Date: 20201208
  Transmission Date: 20210114
  Serious: No
  Sender: FDA-Public Use
  Company Number: None

PATIENT
  Age: 61 Year
  Sex: Female

DRUGS (1)
  1. STELARA [Suspect]
     Active Substance: USTEKINUMAB
     Indication: PSORIASIS
     Dosage: FREQUENCY: DAY 0 , DAY 28 THEN EVERY 12 WEEKS AS DIRECTED
     Route: 058
     Dates: start: 201912

REACTIONS (1)
  - COVID-19 [None]
